FAERS Safety Report 10396079 (Version 1)
Quarter: 2014Q1

REPORT INFORMATION
  Report Type: Spontaneous
  Country: US (occurrence: None)
  Receive Date: 20130524
  Receipt Date: 20130524
  Transmission Date: 20141002
  Serious: Yes (Other)
  Sender: FDA-Public Use
  Company Number: PHEH2012US019356

PATIENT
  Age: 38 Year
  Sex: Female

DRUGS (1)
  1. GILENYA (FTY) CAPSULE [Suspect]
     Indication: RELAPSING-REMITTING MULTIPLE SCLEROSIS
     Route: 048
     Dates: start: 201106, end: 201301

REACTIONS (6)
  - Multiple sclerosis relapse [None]
  - Alopecia [None]
  - Pain in extremity [None]
  - Paraesthesia [None]
  - Gait disturbance [None]
  - Depression [None]
